FAERS Safety Report 10213800 (Version 2)
Quarter: 2014Q2

REPORT INFORMATION
  Report Type: Spontaneous
  Country: JP (occurrence: JP)
  Receive Date: 20140603
  Receipt Date: 20140613
  Transmission Date: 20141212
  Serious: Yes (Death, Other)
  Sender: FDA-Public Use
  Company Number: JP-009507513-1406JPN001016

PATIENT
  Age: 77 Year
  Sex: Female

DRUGS (1)
  1. STROMECTOL TABLETS 3 MG [Suspect]
     Indication: ACARODERMATITIS
     Dosage: DAILY DOSAGE UNKNOWN
     Route: 048

REACTIONS (1)
  - Pulmonary embolism [Fatal]
